FAERS Safety Report 18665862 (Version 1)
Quarter: 2020Q4

REPORT INFORMATION
  Report Type: Spontaneous
  Country: DK (occurrence: DK)
  Receive Date: 20201226
  Receipt Date: 20201226
  Transmission Date: 20210114
  Serious: Yes (Hospitalization)
  Sender: FDA-Public Use
  Company Number: DK-TEVA-2020-DK-1860762

PATIENT
  Age: 38 Year
  Sex: Male
  Weight: 60 kg

DRUGS (2)
  1. ANTABUS [Suspect]
     Active Substance: DISULFIRAM
     Indication: ALCOHOL ABUSE
     Dosage: STRENGTH: 200 MG
     Route: 048
     Dates: start: 20201007, end: 20201105
  2. PINEX [Concomitant]
     Indication: PAIN
     Dosage: DOSAGE: MAXIMUM 4 TIMES A DAY. STRENGTH: 500 MG
     Route: 048
     Dates: start: 20150518

REACTIONS (5)
  - Nausea [Recovering/Resolving]
  - Abdominal pain [Recovering/Resolving]
  - Fatigue [Recovering/Resolving]
  - Drug-induced liver injury [Recovering/Resolving]
  - Liver function test abnormal [Recovering/Resolving]

NARRATIVE: CASE EVENT DATE: 20201105
